FAERS Safety Report 6173551-X (Version None)
Quarter: 2009Q2

REPORT INFORMATION
  Report Type: 
  Country: None (occurrence: None)
  Receive Date: 20090430
  Receipt Date: 20090423
  Transmission Date: 20091009
  Serious: Yes (Death)
  Sender: FDA-Public Use
  Company Number: B0571416A

PATIENT
  Sex: Female

DRUGS (3)
  1. ARIXTRA [Suspect]
     Indication: THROMBOSIS PROPHYLAXIS
     Dosage: 1INJ PER DAY
     Route: 058
     Dates: start: 20090318, end: 20090327
  2. KARDEGIC [Suspect]
     Indication: THROMBOSIS PROPHYLAXIS
     Dosage: 75MG PER DAY
     Route: 048
     Dates: start: 20090318, end: 20090327
  3. CACIT VITAMINE D3 [Concomitant]
     Indication: OSTEOPOROSIS
     Dosage: 2UNIT PER DAY
     Route: 048
     Dates: start: 20090201, end: 20090327

REACTIONS (4)
  - DRUG INTERACTION [None]
  - HAEMORRHAGE INTRACRANIAL [None]
  - INTRACRANIAL HAEMATOMA [None]
  - LOSS OF CONSCIOUSNESS [None]
